FAERS Safety Report 9741494 (Version 3)
Quarter: 2014Q1

REPORT INFORMATION
  Report Type: Spontaneous
  Country: US (occurrence: US)
  Receive Date: 20131209
  Receipt Date: 20140103
  Transmission Date: 20141002
  Serious: Yes (Hospitalization)
  Sender: FDA-Public Use
  Company Number: US-BRISTOL-MYERS SQUIBB COMPANY-19886225

PATIENT
  Age: 44 Year
  Sex: Male
  Weight: 226.75 kg

DRUGS (7)
  1. BYDUREON [Suspect]
     Indication: TYPE 2 DIABETES MELLITUS
     Route: 058
     Dates: start: 20121128
  2. HUMULIN [Concomitant]
  3. TRICOR [Concomitant]
  4. HCTZ [Concomitant]
  5. METFORMIN [Concomitant]
  6. UNIVASC [Concomitant]
  7. MULTIVITAMIN [Concomitant]

REACTIONS (2)
  - Atrial fibrillation [Unknown]
  - Cardiac failure congestive [Unknown]
